FAERS Safety Report 4378500-2 (Version None)
Quarter: 2004Q2

REPORT INFORMATION
  Report Type: 
  Country: None (occurrence: None)
  Receive Date: 20040609
  Receipt Date: 20040524
  Transmission Date: 20050107
  Serious: Yes (Disabling)
  Sender: FDA-Public Use
  Company Number: USA040568232

PATIENT
  Age: 60 Year
  Sex: Male
  Weight: 109 kg

DRUGS (2)
  1. HUMULIN R [Suspect]
     Dosage: 9 U DAY
     Dates: start: 19820101
  2. HUMULIN 70/30 [Suspect]
     Dosage: 65 U DAY
     Dates: start: 19820101

REACTIONS (5)
  - BLOOD GLUCOSE DECREASED [None]
  - CATARACT [None]
  - CORONARY ARTERY OCCLUSION [None]
  - DECREASED ACTIVITY [None]
  - WEIGHT INCREASED [None]
